FAERS Safety Report 5284640-6 (Version None)
Quarter: 2007Q2

REPORT INFORMATION
  Report Type: 
  Country: None (occurrence: None)
  Receive Date: 20070403
  Receipt Date: 20070327
  Transmission Date: 20071010
  Serious: Yes (Other)
  Sender: FDA-Public Use
  Company Number: US-ELI_LILLY_AND_COMPANY-US200703005858

PATIENT
  Sex: Female

DRUGS (2)
  1. HUMALOG [Suspect]
     Indication: DIABETES MELLITUS
     Dates: start: 20050101
  2. LANTUS [Concomitant]
     Indication: DIABETES MELLITUS

REACTIONS (3)
  - CORONARY ARTERY BYPASS [None]
  - IMPLANTABLE DEFIBRILLATOR INSERTION [None]
  - LOWER LIMB FRACTURE [None]
